FAERS Safety Report 17420548 (Version 1)
Quarter: 2020Q1

REPORT INFORMATION
  Report Type: Report from Study
  Country: US (occurrence: US)
  Receive Date: 20200214
  Receipt Date: 20200214
  Transmission Date: 20200409
  Serious: Yes (Other)
  Sender: FDA-Public Use
  Company Number: NVSC2020US033126

PATIENT
  Age: 65 Year
  Sex: Male

DRUGS (1)
  1. COSENTYX [Suspect]
     Active Substance: SECUKINUMAB
     Indication: PSORIASIS
     Dosage: INJECT 2 PENS (300 MG), Q4W
     Route: 058

REACTIONS (2)
  - Product dose omission [Unknown]
  - Sinobronchitis [Recovering/Resolving]

NARRATIVE: CASE EVENT DATE: 20200128
